FAERS Safety Report 25379719 (Version 3)
Quarter: 2025Q2

REPORT INFORMATION
  Report Type: Spontaneous
  Country: US (occurrence: US)
  Receive Date: 20250530
  Receipt Date: 20250626
  Transmission Date: 20250716
  Serious: Yes (Hospitalization, Other)
  Sender: MERCK SHARP & DOHME LLC
  Company Number: US-009507513-2288184

PATIENT
  Age: 39 Year
  Sex: Female
  Weight: 68.946 kg

DRUGS (4)
  1. KEYTRUDA [Suspect]
     Active Substance: PEMBROLIZUMAB
     Indication: Endometrial cancer stage III
     Dosage: STRENGTH: 100 MG
     Route: 042
     Dates: start: 20250509, end: 20250509
  2. CARBOPLATIN [Concomitant]
     Active Substance: CARBOPLATIN
     Indication: Endometrial cancer stage III
     Dates: start: 20250509
  3. TAXOL [Concomitant]
     Active Substance: PACLITAXEL
     Indication: Endometrial cancer stage III
     Dates: start: 20250509
  4. KEFLEX [Suspect]
     Active Substance: CEPHALEXIN
     Route: 065

REACTIONS (3)
  - Stevens-Johnson syndrome [Recovered/Resolved]
  - Toxic epidermal necrolysis [Recovered/Resolved]
  - Pyrexia [Recovered/Resolved]

NARRATIVE: CASE EVENT DATE: 20250516
